FAERS Safety Report 8285110-3 (Version None)
Quarter: 2012Q2

REPORT INFORMATION
  Report Type: 
  Country: None (occurrence: None)
  Receive Date: 20120413
  Receipt Date: 20110721
  Transmission Date: 20120825
  Serious: No
  Sender: FDA-Public Use
  Company Number: US-ASTRAZENECA-2011SE43996

PATIENT
  Sex: Female
  Weight: 65.3 kg

DRUGS (9)
  1. NAPROXEN [Concomitant]
  2. FISH OILS [Concomitant]
  3. ATENOLOL [Concomitant]
     Indication: HYPERTENSION
  4. NEXIUM [Suspect]
     Indication: PROPHYLAXIS AGAINST GASTROINTESTINAL ULCER
     Route: 048
     Dates: start: 20070101
  5. TENORMIN [Concomitant]
     Indication: HYPERTENSION
  6. NEXIUM [Suspect]
     Route: 048
  7. DIOXIDE [Concomitant]
     Indication: HYPERTENSION
  8. CRESTOR [Concomitant]
  9. VITAMIN TAB [Concomitant]

REACTIONS (3)
  - DYSGEUSIA [None]
  - DRY MOUTH [None]
  - INCORRECT DOSE ADMINISTERED [None]
